FAERS Safety Report 10925317 (Version 3)
Quarter: 2016Q2

REPORT INFORMATION
  Report Type: Spontaneous
  Country: US (occurrence: US)
  Receive Date: 20150318
  Receipt Date: 20160505
  Transmission Date: 20160815
  Serious: Yes (Other)
  Sender: FDA-Public Use
  Company Number: US-PFIZER INC-2015092639

PATIENT
  Age: 70 Year
  Sex: Female
  Weight: 97 kg

DRUGS (5)
  1. TYLENOL [Concomitant]
     Active Substance: ACETAMINOPHEN
     Dosage: UNK
  2. LYRICA [Suspect]
     Active Substance: PREGABALIN
     Dosage: 100 MG, 3X/DAY
     Route: 048
     Dates: start: 20150609
  3. LYRICA [Suspect]
     Active Substance: PREGABALIN
     Indication: DIABETIC NEUROPATHY
     Dosage: 100 MG, UNK
     Dates: start: 2014, end: 2014
  4. LYRICA [Suspect]
     Active Substance: PREGABALIN
     Dosage: UNK, 3X/DAY
     Dates: start: 2014, end: 2014
  5. LYRICA [Suspect]
     Active Substance: PREGABALIN
     Dosage: UNK, 2X/DAY
     Dates: start: 2014, end: 2014

REACTIONS (14)
  - Condition aggravated [Not Recovered/Not Resolved]
  - Arthropathy [Recovered/Resolved]
  - Joint stiffness [Not Recovered/Not Resolved]
  - Drug intolerance [Recovering/Resolving]
  - Herpes zoster [Unknown]
  - Osteoporosis [Not Recovered/Not Resolved]
  - Depressed mood [Unknown]
  - Diabetic neuropathy [Unknown]
  - Suicidal ideation [Recovered/Resolved]
  - Movement disorder [Not Recovered/Not Resolved]
  - Drug ineffective [Unknown]
  - Condition aggravated [Unknown]
  - Weight increased [Recovering/Resolving]
  - Gait disturbance [Unknown]

NARRATIVE: CASE EVENT DATE: 2014
